FAERS Safety Report 6897155-6 (Version None)
Quarter: 2010Q3

REPORT INFORMATION
  Report Type: 
  Country: None (occurrence: None)
  Receive Date: 20100802
  Receipt Date: 20070326
  Transmission Date: 20110219
  Serious: Yes (Other)
  Sender: FDA-Public Use
  Company Number: US-PFIZER INC-2007024330

PATIENT
  Age: 73 Year
  Sex: Male
  Weight: 74.5 kg

DRUGS (1)
  1. LYRICA [Suspect]

REACTIONS (1)
  - DIZZINESS [None]
